FAERS Safety Report 24563896 (Version 2)
Quarter: 2025Q3

REPORT INFORMATION
  Report Type: Report from Study
  Country: EU (occurrence: EU)
  Receive Date: 20241030
  Receipt Date: 20250709
  Transmission Date: 20251021
  Serious: Yes (Hospitalization)
  Sender: ABBVIE
  Company Number: EU-ABBVIE-5777548

PATIENT
  Age: 77 Year
  Sex: Female

DRUGS (5)
  1. FOSCARBIDOPA\FOSLEVODOPA [Suspect]
     Active Substance: FOSCARBIDOPA\FOSLEVODOPA
     Indication: Parkinson^s disease
     Route: 058
     Dates: start: 20240130, end: 202405
  2. HALOPERIDOL [Concomitant]
     Active Substance: HALOPERIDOL
     Indication: Obsessive-compulsive disorder
     Dates: start: 20240524
  3. QUETIAPINE [Concomitant]
     Active Substance: QUETIAPINE
     Indication: Obsessive-compulsive disorder
     Dates: start: 202405
  4. NEUPRO [Concomitant]
     Active Substance: ROTIGOTINE
     Indication: Product used for unknown indication
     Dates: start: 202405
  5. NEUPRO [Concomitant]
     Active Substance: ROTIGOTINE
     Indication: Product used for unknown indication
     Dates: end: 202405

REACTIONS (11)
  - Delirium [Recovering/Resolving]
  - Wrong technique in device usage process [Unknown]
  - Hallucination [Not Recovered/Not Resolved]
  - Mania [Unknown]
  - Anxiety [Recovering/Resolving]
  - Delusion [Unknown]
  - Paranoia [Recovering/Resolving]
  - Aggression [Unknown]
  - Visual impairment [Unknown]
  - Obsessive-compulsive disorder [Unknown]
  - Psychotic disorder [Unknown]

NARRATIVE: CASE EVENT DATE: 20240101
